FAERS Safety Report 18963932 (Version 1)
Quarter: 2021Q1

REPORT INFORMATION
  Report Type: Spontaneous
  Country: US (occurrence: US)
  Receive Date: 20210303
  Receipt Date: 20210303
  Transmission Date: 20210420
  Serious: No
  Sender: FDA-Public Use
  Company Number: US-AMNEAL PHARMACEUTICALS-2020-AMRX-00315

PATIENT
  Sex: Male

DRUGS (3)
  1. RYTARY [Suspect]
     Active Substance: CARBIDOPA\LEVODOPA
     Dosage: 23.75/95MG, 1 CAPSULES, 3 /DAY,  AT 7AM?11PM?3PM
     Route: 065
     Dates: start: 201912
  2. RYTARY [Suspect]
     Active Substance: CARBIDOPA\LEVODOPA
     Dosage: 23.75/95MG, 1 CAPSULES AT THE FIRST DOSE (7AM) AND AT THIRD DOSE (3PM)
     Route: 065
  3. RYTARY [Suspect]
     Active Substance: CARBIDOPA\LEVODOPA
     Indication: PARKINSON^S DISEASE
     Dosage: 61.25/245MG, 1 CAPSULES, 4 /DAY, AT 6:30AM TO 7AM, 11AM, 3PM, 7PM , USUALLY 4HRS APART
     Route: 065
     Dates: start: 201810

REACTIONS (2)
  - Localised infection [Unknown]
  - Therapeutic response shortened [Recovered/Resolved]
